FAERS Safety Report 8513256-0 (Version None)
Quarter: 2012Q3

REPORT INFORMATION
  Report Type: 
  Country: None (occurrence: None)
  Receive Date: 20120716
  Receipt Date: 20120709
  Transmission Date: 20120928
  Serious: Yes (Hospitalization, Other)
  Sender: FDA-Public Use
  Company Number: US-BAYER-2011-081879

PATIENT
  Age: 29 Year
  Sex: Female
  Weight: 68.027 kg

DRUGS (15)
  1. GABAPENTIN [Concomitant]
     Dosage: 300 MG, TID
     Dates: start: 20090805
  2. YASMIN [Suspect]
     Indication: CONTRACEPTION
     Dosage: UNK
     Dates: start: 20041001
  3. DROSPIRENONE AND ETHINYL ESTRADIOL [Suspect]
     Indication: CONTRACEPTION
     Dosage: UNK
     Dates: start: 20090201, end: 20091001
  4. OXYCODONE HCL [Concomitant]
     Indication: PAIN
     Dosage: UNK
     Dates: start: 20090601, end: 20100401
  5. LYRICA [Concomitant]
     Dosage: 50 MG, TID
     Dates: start: 20090831, end: 20091119
  6. CYCLOBENZAPRINE [Concomitant]
     Indication: PAIN
     Dosage: 10 MG, UNK
     Dates: start: 20090915
  7. LYRICA [Concomitant]
     Indication: INSOMNIA
     Dosage: 50 MG, UNK
     Dates: start: 20090930
  8. CYANOCOBALAMIN [Concomitant]
     Dosage: 1000
     Dates: start: 20090824
  9. TRAMADOL HCL [Concomitant]
     Dosage: 50 MG, UNK
     Dates: start: 20090911
  10. PERCOCET [Concomitant]
  11. MECLIZINE [Concomitant]
     Dosage: 25 MG, UNK
     Dates: start: 20090826
  12. OXYCODONE AND ACETAMINOPHEN [Concomitant]
     Indication: PAIN
     Dosage: UNK
     Dates: start: 20090924
  13. OXYCODONE HCL AND ACETAMINOPHEN [Concomitant]
     Dosage: 10-325MG
     Dates: start: 20090819
  14. YASMIN [Suspect]
     Dosage: UNK
     Dates: start: 20050201
  15. CYMBALTA [Concomitant]
     Dosage: 60 MG, UNK
     Dates: start: 20090624, end: 20091218

REACTIONS (9)
  - PULMONARY INFARCTION [None]
  - CHOLECYSTECTOMY [None]
  - DEPRESSION [None]
  - PULMONARY EMBOLISM [None]
  - PNEUMONIA [None]
  - CHOLECYSTITIS CHRONIC [None]
  - ANXIETY [None]
  - PAIN [None]
  - INJURY [None]
